FAERS Safety Report 4659010-1 (Version None)
Quarter: 2005Q2

REPORT INFORMATION
  Report Type: 
  Country: None (occurrence: None)
  Receive Date: 20050511
  Receipt Date: 20050502
  Transmission Date: 20051028
  Serious: Yes (Life-Threatening, Hospitalization, Other)
  Sender: FDA-Public Use
  Company Number: US-GLAXOSMITHKLINE-A0556946A

PATIENT
  Age: 4 Year
  Sex: Female

DRUGS (1)
  1. WELLBUTRIN [Suspect]
     Route: 048

REACTIONS (3)
  - DELIRIUM [None]
  - HALLUCINATION [None]
  - OVERDOSE [None]
